FAERS Safety Report 19442841 (Version 1)
Quarter: 2021Q2

REPORT INFORMATION
  Report Type: Spontaneous
  Country: US (occurrence: US)
  Receive Date: 20210619
  Receipt Date: 20210619
  Transmission Date: 20210717
  Serious: Yes (Disabling)
  Sender: FDA-Public Use
  Company Number: None

PATIENT
  Age: 26 Year
  Sex: Female
  Weight: 58.5 kg

DRUGS (3)
  1. MONISTAT TIOCONAZOLE 1 [Suspect]
     Active Substance: TIOCONAZOLE
     Indication: VULVOVAGINAL MYCOTIC INFECTION
     Dosage: ?          QUANTITY:1 VAGINAL APPLICATOR;?
     Route: 067
     Dates: start: 20210618, end: 20210618
  2. TRI?SPRINTEC ORAL CONTRACEPTIVE [Concomitant]
  3. VITAFUSION WOMEN^S DAILY GUMMY VITAMIN [Concomitant]

REACTIONS (6)
  - Vulvovaginal exfoliation [None]
  - Vulvovaginal swelling [None]
  - Vulvovaginal pain [None]
  - Vaginal haemorrhage [None]
  - Vulvovaginal erythema [None]
  - Vulvovaginal burning sensation [None]

NARRATIVE: CASE EVENT DATE: 20210619
